FAERS Safety Report 17252030 (Version 2)
Quarter: 2020Q2

REPORT INFORMATION
  Report Type: Report from Study
  Country: None (occurrence: US)
  Receive Date: 20200109
  Receipt Date: 20200413
  Transmission Date: 20200713
  Serious: Yes (Death)
  Sender: FDA-Public Use
  Company Number: US-ABBVIE-20K-163-3223114-00

PATIENT
  Age: 82 Year
  Sex: Male

DRUGS (1)
  1. HUMIRA [Suspect]
     Active Substance: ADALIMUMAB
     Indication: UVEITIS
     Route: 058
     Dates: start: 201909, end: 201911

REACTIONS (3)
  - Staphylococcal sepsis [Fatal]
  - Decubitus ulcer [Fatal]
  - Immune system disorder [Fatal]

NARRATIVE: CASE EVENT DATE: 2019
